FAERS Safety Report 21766775 (Version 1)
Quarter: 2022Q4

REPORT INFORMATION
  Report Type: Spontaneous
  Country: CH (occurrence: CH)
  Receive Date: 20221222
  Receipt Date: 20221222
  Transmission Date: 20230113
  Serious: Yes (Hospitalization, Other)
  Sender: FDA-Public Use
  Company Number: None

PATIENT
  Age: 41 Year
  Sex: Female

DRUGS (19)
  1. SOLU-CORTEF [Interacting]
     Active Substance: HYDROCORTISONE SODIUM SUCCINATE
     Dosage: 18SEP.-23SEP22 100 MG
     Route: 042
     Dates: start: 20220918, end: 20220923
  2. SOLU-CORTEF [Interacting]
     Active Substance: HYDROCORTISONE SODIUM SUCCINATE
     Dosage: THEN 50 MG INTRAVENOUSLY/4H
     Route: 042
  3. PHENYTOIN [Suspect]
     Active Substance: PHENYTOIN
     Indication: Epilepsy
     Dosage: 100 MG, 3X/DAY
     Route: 048
     Dates: end: 20221004
  4. PHENYTOIN [Interacting]
     Active Substance: PHENYTOIN
     Indication: Epilepsy
     Dosage: 100 MG, 3X/DAY
     Route: 048
     Dates: end: 20221004
  5. HYDROCORTISONE [Interacting]
     Active Substance: HYDROCORTISONE
     Dosage: 25 MG, 1X/DAY
     Route: 048
     Dates: end: 20220918
  6. HYDROCORTISONE [Interacting]
     Active Substance: HYDROCORTISONE
     Dosage: 40 MG, 1X/DAY
     Route: 048
     Dates: start: 20220923, end: 20220927
  7. HYDROCORTISONE [Interacting]
     Active Substance: HYDROCORTISONE
     Dosage: 30 MG, 1X/DAY
     Route: 048
     Dates: start: 20220928, end: 20221004
  8. HYDROCORTISONE [Suspect]
     Active Substance: HYDROCORTISONE
     Dosage: 25 MG, 1X/DAY
     Route: 048
     Dates: end: 20220918
  9. HYDROCORTISONE [Suspect]
     Active Substance: HYDROCORTISONE
     Dosage: 40 MG, 1X/DAY
     Route: 048
     Dates: start: 20220923, end: 20220927
  10. HYDROCORTISONE [Suspect]
     Active Substance: HYDROCORTISONE
     Dosage: 30 MG, 1X/DAY
     Route: 048
     Dates: start: 20220928, end: 20221004
  11. FERRUM HAUSMANN [IRON DEXTRAN] [Concomitant]
     Dosage: 100 MG 4X/WEEK
     Route: 048
  12. CREON [Concomitant]
     Active Substance: PANCRELIPASE AMYLASE\PANCRELIPASE LIPASE\PANCRELIPASE PROTEASE
     Dosage: 10000 IU, 3X/DAY, 10000 IU 1-1-1-0
     Route: 048
  13. ELIQUIS [Concomitant]
     Active Substance: APIXABAN
     Dosage: 5 MG, 2X/DAY, 1-0-1-0
     Route: 048
  14. EUTHYROX [Concomitant]
     Active Substance: LEVOTHYROXINE SODIUM
     Dosage: 150 UG, 1X/DAY, 1-0-0-0
     Route: 048
  15. EZETIMIBE\ROSUVASTATIN [Concomitant]
     Active Substance: EZETIMIBE\ROSUVASTATIN
     Dosage: 10MG/20MG 1-0-0-0
     Route: 048
  16. LEVETIRACETAM [Concomitant]
     Active Substance: LEVETIRACETAM
     Dosage: 1500 MG, 2X/DAY, 1000 MG 1-0-1-0
     Route: 048
     Dates: start: 202205
  17. PANTOPRAZOLE SODIUM [Concomitant]
     Active Substance: PANTOPRAZOLE SODIUM
     Dosage: 40 MG, 2X/DAY, 40 MG 1-0-1-0
     Route: 048
  18. LANTUS [Concomitant]
     Active Substance: INSULIN GLARGINE
     Dosage: 1 DF
     Route: 058
  19. MAGNESIUM DIASPORAL [MAGNESIUM CITRATE] [Concomitant]
     Dosage: 300 MG, 1X/DAY, 300 MG 1-0-0-0
     Route: 048

REACTIONS (15)
  - Drug interaction [Recovering/Resolving]
  - Labelled drug-drug interaction medication error [Recovering/Resolving]
  - Disturbance in attention [Recovering/Resolving]
  - Adrenocortical insufficiency acute [Recovering/Resolving]
  - Drug level increased [Recovering/Resolving]
  - Hypothermia [Recovering/Resolving]
  - Bradycardia [Recovering/Resolving]
  - Electrolyte imbalance [Recovering/Resolving]
  - Respiratory failure [Recovering/Resolving]
  - Respiratory acidosis [Recovering/Resolving]
  - Encephalopathy [Recovering/Resolving]
  - Hypotension [Recovering/Resolving]
  - Fungal skin infection [Recovering/Resolving]
  - Asymptomatic bacteriuria [Recovering/Resolving]
  - Fall [Unknown]

NARRATIVE: CASE EVENT DATE: 20220918
